FAERS Safety Report 8269105-1 (Version None)
Quarter: 2012Q2

REPORT INFORMATION
  Report Type: 
  Country: None (occurrence: None)
  Receive Date: 20120409
  Receipt Date: 20120404
  Transmission Date: 20120825
  Serious: No
  Sender: FDA-Public Use
  Company Number: US-BAYER-2012-033973

PATIENT
  Age: 46 Year
  Sex: Female
  Weight: 86.168 kg

DRUGS (2)
  1. GADAVIST [Suspect]
     Indication: OSTEOMYELITIS
  2. GADAVIST [Suspect]
     Indication: NUCLEAR MAGNETIC RESONANCE IMAGING
     Dosage: 7.5 ML, ONCE
     Route: 042
     Dates: start: 20120403, end: 20120403

REACTIONS (1)
  - PRURITUS [None]
